FAERS Safety Report 12457789 (Version 1)
Quarter: 2016Q2

REPORT INFORMATION
  Report Type: Spontaneous
  Country: CZ (occurrence: CZ)
  Receive Date: 20160611
  Receipt Date: 20160611
  Transmission Date: 20160815
  Serious: Yes (Hospitalization)
  Sender: FDA-Public Use
  Company Number: CZ-SCIEGEN PHARMACEUTICALS INC-2016SCILIT00194

PATIENT
  Age: 40 Year
  Sex: Male

DRUGS (11)
  1. CLONAZEPAM. [Suspect]
     Active Substance: CLONAZEPAM
     Dosage: 5MG DAILY (2MG MORNING, 1MG NOON, 2MG EVENING)
     Route: 065
  2. ALPRAZOLAM. [Suspect]
     Active Substance: ALPRAZOLAM
     Indication: ANXIETY
     Dosage: 10 MG, QD
     Route: 065
  3. BETAXOLOL. [Suspect]
     Active Substance: BETAXOLOL
     Indication: PRODUCT USED FOR UNKNOWN INDICATION
     Dosage: 10 MG, QD
     Route: 065
  4. GABAPENTIN CAPSULES [Suspect]
     Active Substance: GABAPENTIN
     Dosage: 900 MG, TID
     Route: 065
  5. CLONAZEPAM. [Suspect]
     Active Substance: CLONAZEPAM
     Dosage: 2 MG/2?3 DAYS
     Route: 065
  6. CITALOPRAM [Suspect]
     Active Substance: CITALOPRAM HYDROBROMIDE
     Indication: PRODUCT USED FOR UNKNOWN INDICATION
     Dosage: 20 MG, QD
     Route: 065
  7. CLONAZEPAM. [Suspect]
     Active Substance: CLONAZEPAM
     Indication: PRODUCT USED FOR UNKNOWN INDICATION
     Dosage: 60 MG, UNK
     Route: 065
  8. SULPIRID [Suspect]
     Active Substance: SULPIRIDE
     Indication: PRODUCT USED FOR UNKNOWN INDICATION
     Dosage: 50MG 1 TO 3 TIMES DAILY
     Route: 065
  9. GABAPENTIN CAPSULES [Suspect]
     Active Substance: GABAPENTIN
     Indication: EPILEPSY
     Dosage: 600 MG, TID
     Route: 065
  10. CLONAZEPAM. [Suspect]
     Active Substance: CLONAZEPAM
     Dosage: 4 MG, TID
     Route: 065
  11. ALPRAZOLAM. [Suspect]
     Active Substance: ALPRAZOLAM
     Indication: TENSION
     Dosage: 1 MG, BID
     Route: 065

REACTIONS (12)
  - Drug dependence [None]
  - Disinhibition [Unknown]
  - Weight decreased [None]
  - Tension [Unknown]
  - Drug withdrawal syndrome [None]
  - Headache [Unknown]
  - Gilbert^s syndrome [Unknown]
  - Aggression [None]
  - Treatment failure [None]
  - Anxiety [None]
  - Panic attack [None]
  - Insomnia [Unknown]
